FAERS Safety Report 25334684 (Version 1)
Quarter: 2025Q2

REPORT INFORMATION
  Report Type: Spontaneous
  Country: RO (occurrence: RO)
  Receive Date: 20250520
  Receipt Date: 20250520
  Transmission Date: 20250717
  Serious: Yes (Hospitalization, Other)
  Sender: CHEPLAPHARM
  Company Number: RO-CHEPLA-2025006237

PATIENT
  Age: 68 Year
  Sex: Male

DRUGS (44)
  1. CLONAZEPAM [Suspect]
     Active Substance: CLONAZEPAM
     Indication: Psychomotor hyperactivity
     Dosage: DAILY DOSE: 1.5 MILLIGRAM
     Route: 048
  2. CLONAZEPAM [Suspect]
     Active Substance: CLONAZEPAM
     Indication: Sedation
     Dosage: DAILY DOSE: 1.5 MILLIGRAM
     Route: 048
  3. NITRAZEPAM [Suspect]
     Active Substance: NITRAZEPAM
     Indication: Psychomotor hyperactivity
     Dosage: CONTINUED?DAILY DOSE: 2.5 MILLIGRAM
     Route: 048
  4. NITRAZEPAM [Suspect]
     Active Substance: NITRAZEPAM
     Indication: Sedation
     Dosage: CONTINUED?DAILY DOSE: 2.5 MILLIGRAM
     Route: 048
  5. TRAZODONE [Suspect]
     Active Substance: TRAZODONE HYDROCHLORIDE
     Indication: Antidepressant therapy
     Dosage: DAILY DOSE: 150 MILLIGRAM
     Route: 048
  6. MIRTAZAPINE [Suspect]
     Active Substance: MIRTAZAPINE
     Indication: Agitation
     Dosage: DAILY DOSE: 15 MILLIGRAM
     Route: 048
  7. MIRTAZAPINE [Suspect]
     Active Substance: MIRTAZAPINE
     Indication: Antidepressant therapy
     Dosage: DAILY DOSE: 15 MILLIGRAM
     Route: 048
  8. MIRTAZAPINE [Suspect]
     Active Substance: MIRTAZAPINE
     Indication: Agitation
     Dosage: CONTINUED?DAILY DOSE: 30 MILLIGRAM
     Route: 048
  9. MIRTAZAPINE [Suspect]
     Active Substance: MIRTAZAPINE
     Indication: Antidepressant therapy
     Dosage: CONTINUED?DAILY DOSE: 30 MILLIGRAM
     Route: 048
  10. CARBAMAZEPINE [Concomitant]
     Active Substance: CARBAMAZEPINE
     Indication: Mood swings
     Dosage: DAILY DOSE: 400 MILLIGRAM
     Route: 048
  11. CARBAMAZEPINE [Concomitant]
     Active Substance: CARBAMAZEPINE
     Indication: Mood swings
     Dosage: DAILY DOSE: 600 MILLIGRAM
     Route: 048
  12. MEMANTINE [Concomitant]
     Active Substance: MEMANTINE
     Indication: Dementia
     Dosage: DAILY DOSE: 20 MILLIGRAM
     Route: 048
  13. RISPERIDONE [Concomitant]
     Active Substance: RISPERIDONE
     Indication: Psychomotor hyperactivity
     Dosage: DAILY DOSE: 2 MILLIGRAM
     Route: 048
  14. RISPERIDONE [Concomitant]
     Active Substance: RISPERIDONE
     Indication: Sedation
     Dosage: DAILY DOSE: 2 MILLIGRAM
     Route: 048
  15. RISPERIDONE [Concomitant]
     Active Substance: RISPERIDONE
     Indication: Psychomotor hyperactivity
     Dosage: REDUCED DOSE?DAILY DOSE: 1 MILLIGRAM
     Route: 048
  16. RISPERIDONE [Concomitant]
     Active Substance: RISPERIDONE
     Indication: Sedation
     Dosage: REDUCED DOSE?DAILY DOSE: 1 MILLIGRAM
     Route: 048
  17. RISPERIDONE [Concomitant]
     Active Substance: RISPERIDONE
     Indication: Psychomotor hyperactivity
     Dosage: DAILY DOSE: 4 MILLIGRAM
     Route: 048
  18. RISPERIDONE [Concomitant]
     Active Substance: RISPERIDONE
     Indication: Sedation
     Dosage: DAILY DOSE: 4 MILLIGRAM
     Route: 048
  19. RISPERIDONE [Concomitant]
     Active Substance: RISPERIDONE
     Indication: Psychomotor hyperactivity
     Dosage: DAILY DOSE: 2.5 MILLIGRAM
     Route: 048
  20. RISPERIDONE [Concomitant]
     Active Substance: RISPERIDONE
     Indication: Sedation
     Dosage: DAILY DOSE: 2.5 MILLIGRAM
     Route: 048
  21. LORAZEPAM [Concomitant]
     Active Substance: LORAZEPAM
     Dosage: DAILY DOSE: 2 MILLIGRAM
     Route: 030
  22. LORAZEPAM [Concomitant]
     Active Substance: LORAZEPAM
     Dosage: DAILY DOSE: 2 MILLIGRAM
     Route: 048
  23. LORAZEPAM [Concomitant]
     Active Substance: LORAZEPAM
     Dosage: DAILY DOSE: 1 MILLIGRAM
     Route: 048
  24. LORAZEPAM [Concomitant]
     Active Substance: LORAZEPAM
     Route: 048
  25. LORAZEPAM [Concomitant]
     Active Substance: LORAZEPAM
     Dosage: DAILY DOSE: 1 MILLIGRAM
     Route: 030
  26. LORAZEPAM [Concomitant]
     Active Substance: LORAZEPAM
     Dosage: DAILY DOSE: 1 MILLIGRAM
     Route: 048
  27. ENALAPRIL [Concomitant]
     Active Substance: ENALAPRIL
     Indication: Hypertension
     Dosage: DAILY DOSE: 10 MILLIGRAM
     Route: 048
  28. CITICOLINE SODIUM [Concomitant]
     Active Substance: CITICOLINE SODIUM
     Indication: Nutritional supplementation
  29. CHOLINE [Concomitant]
     Active Substance: CHOLINE
     Indication: Nutritional supplementation
  30. CITICOLINE [Concomitant]
     Active Substance: CITICOLINE
     Indication: Nutritional supplementation
  31. Polygonum cuspidatum [Concomitant]
     Indication: Nutritional supplementation
  32. Bacopa monieri [Concomitant]
     Indication: Nutritional supplementation
  33. PHOSPHATIDYL SERINE [Concomitant]
     Active Substance: PHOSPHATIDYL SERINE
     Indication: Nutritional supplementation
  34. TRAMIPROSATE [Concomitant]
     Active Substance: TRAMIPROSATE
     Indication: Nutritional supplementation
     Dosage: DAILY DOSE: 1 DOSAGE FORM
  35. SALINE [Concomitant]
     Active Substance: SODIUM CHLORIDE
     Dosage: DAILY DOSE: 500 MILLILITRE
     Route: 042
  36. SODIUM CHLORIDE [Concomitant]
     Active Substance: SODIUM CHLORIDE
     Dosage: DAILY DOSE: 15 MICROEQUIVALENT
     Route: 042
  37. DEXTROSE [Concomitant]
     Active Substance: DEXTROSE MONOHYDRATE
     Dosage: DAILY DOSE: 500 MILLILITRE
     Route: 042
  38. DONEPEZIL [Concomitant]
     Active Substance: DONEPEZIL
     Indication: Agitation
     Dosage: DAILY DOSE: 5 MILLIGRAM
     Route: 048
  39. DONEPEZIL [Concomitant]
     Active Substance: DONEPEZIL
     Indication: Dementia
     Dosage: DAILY DOSE: 5 MILLIGRAM
     Route: 048
  40. DONEPEZIL [Concomitant]
     Active Substance: DONEPEZIL
     Indication: Agitation
     Dosage: DAILY DOSE: 10 MILLIGRAM
     Route: 048
  41. DONEPEZIL [Concomitant]
     Active Substance: DONEPEZIL
     Indication: Dementia
     Dosage: DAILY DOSE: 10 MILLIGRAM
     Route: 048
  42. VALPROIC ACID [Concomitant]
     Active Substance: VALPROIC ACID
     Indication: Rash
     Dosage: DAILY DOSE: 600 MILLIGRAM
  43. VALPROIC ACID [Concomitant]
     Active Substance: VALPROIC ACID
     Indication: Mood swings
     Dosage: DAILY DOSE: 600 MILLIGRAM
  44. GABAPENTIN [Concomitant]
     Active Substance: GABAPENTIN
     Indication: Somatic dysfunction
     Dosage: DAILY DOSE: 800 MILLIGRAM
     Route: 048

REACTIONS (4)
  - Pneumonia aspiration [Recovered/Resolved]
  - Hypernatraemia [Recovered/Resolved]
  - Somatic dysfunction [Unknown]
  - Off label use [Recovered/Resolved]
